FAERS Safety Report 7383796-9 (Version None)
Quarter: 2011Q1

REPORT INFORMATION
  Report Type: 
  Country: None (occurrence: None)
  Receive Date: 20110330
  Receipt Date: 20110321
  Transmission Date: 20110831
  Serious: Yes (Other)
  Sender: FDA-Public Use
  Company Number: DE-AMGEN-DEUSP2011008350

PATIENT
  Age: 84 Year
  Weight: 49 kg

DRUGS (14)
  1. PROTAPHANE                         /00646002/ [Concomitant]
     Route: 058
  2. CORVATON [Concomitant]
     Dosage: 8 MG, UNK
     Route: 048
  3. ASPIRIN [Concomitant]
     Route: 048
  4. DIOVAN [Concomitant]
     Route: 048
  5. PROLIA [Suspect]
     Indication: OSTEOPOROSIS
     Dosage: 60 MG, ONE TIME DOSE
     Route: 058
     Dates: start: 20101011
  6. NITROLINGUAL [Concomitant]
  7. CALCIUMACETAT [Concomitant]
     Dosage: 950 MG, UNK
     Route: 048
  8. TILIDIN [Concomitant]
     Dosage: UNK UNK, PRN
     Route: 048
  9. DREISAVIT N [Concomitant]
     Route: 048
  10. FURORESE                           /00032601/ [Concomitant]
     Dosage: 500 MG, UNK
     Route: 048
  11. NOVAMINSULFON-RATIOPHARM [Concomitant]
     Dosage: 500 MG, UNK
     Route: 048
  12. METOPROLOL [Concomitant]
     Route: 048
  13. MCP 1A PHARMA [Concomitant]
     Dosage: UNK
     Route: 048
  14. SIMVAHEXAL [Concomitant]
     Dosage: 20 MG, UNK
     Route: 048

REACTIONS (2)
  - HYPOCALCAEMIA [None]
  - BLOOD PARATHYROID HORMONE INCREASED [None]
